FAERS Safety Report 10662816 (Version 1)
Quarter: 2014Q4

REPORT INFORMATION
  Report Type: Spontaneous
  Country: FR (occurrence: FR)
  Receive Date: 20141218
  Receipt Date: 20141218
  Transmission Date: 20150529
  Serious: Yes (Other)
  Sender: FDA-Public Use
  Company Number: FR-ACTAVIS-2014-26859

PATIENT
  Age: 35 Year
  Sex: Female

DRUGS (7)
  1. BACLOFEN (UNKNOWN) [Suspect]
     Active Substance: BACLOFEN
     Indication: ALCOHOLISM
     Dosage: 120 MG, DAILY
     Route: 065
  2. BACLOFEN (UNKNOWN) [Interacting]
     Active Substance: BACLOFEN
     Dosage: 100 MG, DAILY
     Route: 065
  3. AMLODIPINE [Suspect]
     Active Substance: AMLODIPINE BESYLATE
     Indication: HYPERTENSION
     Dosage: 10 MG, DAILY
     Route: 065
  4. LITHIUM CARBONATE. [Suspect]
     Active Substance: LITHIUM CARBONATE
     Indication: BIPOLAR DISORDER
     Dosage: 400 MG, DAILY
     Route: 065
  5. BACLOFEN (UNKNOWN) [Interacting]
     Active Substance: BACLOFEN
     Dosage: 90 MG, DAILY
     Route: 065
  6. ALCOHOL. [Interacting]
     Active Substance: ALCOHOL
     Indication: ALCOHOLISM
     Dosage: UNK
     Route: 065
  7. VENLAFAXINE [Concomitant]
     Active Substance: VENLAFAXINE HYDROCHLORIDE
     Indication: PRODUCT USED FOR UNKNOWN INDICATION
     Dosage: 37.5 MG, DAILY
     Route: 065

REACTIONS (3)
  - Alcohol interaction [Unknown]
  - Off label use [Unknown]
  - Oedema peripheral [Recovered/Resolved]
